FAERS Safety Report 8600467-9 (Version None)
Quarter: 2012Q3

REPORT INFORMATION
  Report Type: 
  Country: None (occurrence: None)
  Receive Date: 20120817
  Receipt Date: 20120810
  Transmission Date: 20120928
  Serious: Yes (Other)
  Sender: FDA-Public Use
  Company Number: US-ELI_LILLY_AND_COMPANY-US201208003811

PATIENT
  Age: 33 Year
  Sex: Male
  Weight: 86.621 kg

DRUGS (10)
  1. ZYPREXA [Suspect]
     Dosage: 20 MG, QD
     Dates: start: 20040101
  2. ZYPREXA [Suspect]
     Indication: BIPOLAR DISORDER
     Dosage: 10 MG, BID
  3. GEMFIBROZIL [Concomitant]
     Dosage: 1 DF, UNKNOWN
  4. ENALAPRIL MALEATE [Concomitant]
     Dosage: 1 DF, UNKNOWN
  5. LORTAB [Concomitant]
     Dosage: 1 DF, UNKNOWN
  6. XANAX [Concomitant]
     Dosage: 1 DF, UNKNOWN
  7. LOVAZA [Concomitant]
     Dosage: 1 DF, UNKNOWN
  8. GLYBURIDE [Concomitant]
     Indication: DIABETES MELLITUS
     Dosage: 1 DF, UNKNOWN
  9. METFORMIN HCL [Concomitant]
     Indication: DIABETES MELLITUS
     Dosage: 1 DF, UNKNOWN
  10. ASPIRIN [Concomitant]
     Dosage: 1 DF, UNKNOWN

REACTIONS (22)
  - TYPE 2 DIABETES MELLITUS [None]
  - SUICIDAL IDEATION [None]
  - ERECTILE DYSFUNCTION [None]
  - RENAL FAILURE [None]
  - BLOOD GLUCOSE ABNORMAL [None]
  - CHEST PAIN [None]
  - UNEVALUABLE EVENT [None]
  - LIBIDO DECREASED [None]
  - CRYING [None]
  - PAIN [None]
  - VISUAL IMPAIRMENT [None]
  - MUSCLE ATROPHY [None]
  - HEARING DISABILITY [None]
  - DYSSTASIA [None]
  - MUSCLE SPASMS [None]
  - FATIGUE [None]
  - BLINDNESS UNILATERAL [None]
  - WEIGHT DECREASED [None]
  - BRADYPHRENIA [None]
  - RASH [None]
  - URINARY INCONTINENCE [None]
  - ALOPECIA [None]
